FAERS Safety Report 24956656 (Version 4)
Quarter: 2025Q2

REPORT INFORMATION
  Report Type: Report from Study
  Country: US (occurrence: US)
  Receive Date: 20250211
  Receipt Date: 20250428
  Transmission Date: 20250716
  Serious: No
  Sender: SUNOVION
  Company Number: US-SUMITOMO PHARMA SWITZERLAND GMBH-2025SPA000958

PATIENT

DRUGS (10)
  1. ORGOVYX [Suspect]
     Active Substance: RELUGOLIX
     Indication: Prostate cancer
     Dosage: 120 MG, QD...STARTED WITH BIOLOGICS
     Route: 048
     Dates: start: 20241212
  2. ATORVASTATIN [Concomitant]
     Active Substance: ATORVASTATIN
     Dosage: 80 MG, QD
     Route: 048
  3. BERBERINE CHLORIDE [Concomitant]
     Active Substance: BERBERINE CHLORIDE
     Route: 048
  4. DOCONEXENT\ICOSAPENT [Concomitant]
     Active Substance: DOCONEXENT\ICOSAPENT
     Route: 065
  5. Multivital [Concomitant]
     Route: 048
  6. ADVIL PM (DIPHENHYDRAMINE HYDROCHLORIDE\IBUPROFEN) [Concomitant]
     Active Substance: DIPHENHYDRAMINE HYDROCHLORIDE\IBUPROFEN
     Route: 048
  7. MOMETASONE [Concomitant]
     Active Substance: MOMETASONE
  8. OMEPRAZOLE [Concomitant]
     Active Substance: OMEPRAZOLE
     Indication: Barrett^s oesophagus
     Dosage: 40 MG, QD
     Route: 048
  9. NATTOKINASE [Concomitant]
     Active Substance: NATTOKINASE
     Route: 048
  10. TAMSULOSIN [Concomitant]
     Active Substance: TAMSULOSIN
     Dosage: 0.4 MG, QD
     Route: 048

REACTIONS (4)
  - Glucose tolerance impaired [Unknown]
  - Urinary incontinence [Unknown]
  - Male genital atrophy [Unknown]
  - Incorrect dose administered [Unknown]
